FAERS Safety Report 9428279 (Version 2)
Quarter: 2013Q4

REPORT INFORMATION
  Report Type: Report from Study
  Country: DE (occurrence: DE)
  Receive Date: 20130730
  Receipt Date: 20131015
  Transmission Date: 20140711
  Serious: Yes (Other)
  Sender: FDA-Public Use
  Company Number: DE-US-EMD SERONO, INC.-7226000

PATIENT
  Age: 64 Year
  Sex: Female

DRUGS (3)
  1. REBIF [Suspect]
     Indication: MULTIPLE SCLEROSIS
     Route: 058
     Dates: start: 201009, end: 201308
  2. CITALOPRAM [Concomitant]
     Indication: DEPRESSION
  3. SPASMEX                            /00376202/ [Concomitant]
     Indication: BLADDER DISORDER

REACTIONS (3)
  - Loss of consciousness [Not Recovered/Not Resolved]
  - Renal function test abnormal [Not Recovered/Not Resolved]
  - Liver function test abnormal [Not Recovered/Not Resolved]
